FAERS Safety Report 8431501-7 (Version None)
Quarter: 2012Q2

REPORT INFORMATION
  Report Type: 
  Country: None (occurrence: None)
  Receive Date: 20120613
  Receipt Date: 20120601
  Transmission Date: 20120825
  Serious: Yes (Hospitalization, Other)
  Sender: FDA-Public Use
  Company Number: FR-JNJFOC-20120311275

PATIENT
  Age: 22 Year
  Sex: Female
  Weight: 60 kg

DRUGS (3)
  1. REMICADE [Suspect]
     Indication: CROHN'S DISEASE
     Route: 042
     Dates: start: 20120306
  2. REMICADE [Suspect]
     Route: 042
     Dates: start: 20120404
  3. REMICADE [Suspect]
     Dosage: 300 (UNITS NOT SPECIFIED)
     Route: 042
     Dates: start: 20120221

REACTIONS (2)
  - PANCREATITIS ACUTE [None]
  - HYPERLIPASAEMIA [None]
